FAERS Safety Report 9826858 (Version 3)
Quarter: 2014Q1

REPORT INFORMATION
  Report Type: Report from Study
  Country: CO (occurrence: CO)
  Receive Date: 20140117
  Receipt Date: 20140218
  Transmission Date: 20141002
  Serious: Yes (Hospitalization)
  Sender: FDA-Public Use
  Company Number: CO-SA-2014SA003871

PATIENT
  Age: 81 Year
  Sex: Male

DRUGS (2)
  1. LANTUS [Suspect]
     Indication: DIABETES MELLITUS
     Dosage: DOSE:50 UNIT(S)
     Route: 058
     Dates: start: 201311
  2. LOSARTAN [Concomitant]
     Indication: NEPHROPATHY
     Route: 048

REACTIONS (3)
  - Pancreatic mass [Recovering/Resolving]
  - Cholangitis [Recovering/Resolving]
  - Blood glucose fluctuation [Recovering/Resolving]
